FAERS Safety Report 6158690-1 (Version None)
Quarter: 2009Q2

REPORT INFORMATION
  Report Type: 
  Country: None (occurrence: None)
  Receive Date: 20090417
  Receipt Date: 20090408
  Transmission Date: 20091009
  Serious: Yes (Other)
  Sender: FDA-Public Use
  Company Number: A0767697A

PATIENT
  Age: 83 Year
  Sex: Female

DRUGS (8)
  1. ARIXTRA [Suspect]
     Indication: DRUG USE FOR UNKNOWN INDICATION
     Dosage: 2.5MG PER DAY
     Route: 058
     Dates: start: 20081101
  2. COUMADIN [Suspect]
     Indication: DRUG USE FOR UNKNOWN INDICATION
  3. ATENOLOL [Concomitant]
  4. FUROSEMIDE [Concomitant]
  5. SYNTHROID [Concomitant]
  6. TRACLEER [Concomitant]
  7. REVATIO [Concomitant]
  8. NEXIUM [Concomitant]

REACTIONS (18)
  - CALCINOSIS [None]
  - CALCIPHYLAXIS [None]
  - CELLULITIS [None]
  - CONDITION AGGRAVATED [None]
  - DERMATITIS [None]
  - DRUG INEFFECTIVE [None]
  - GALLBLADDER DISORDER [None]
  - HAEMORRHAGE [None]
  - HERPES ZOSTER [None]
  - HYPERAESTHESIA [None]
  - IMPAIRED HEALING [None]
  - LOCAL SWELLING [None]
  - PAIN [None]
  - PAIN IN EXTREMITY [None]
  - PANCREATIC MASS [None]
  - PROCEDURAL PAIN [None]
  - VARICOSE VEIN RUPTURED [None]
  - WOUND INFECTION [None]
